FAERS Safety Report 14142568 (Version 2)
Quarter: 2017Q4

REPORT INFORMATION
  Report Type: Spontaneous
  Country: IT (occurrence: IT)
  Receive Date: 20171030
  Receipt Date: 20171106
  Transmission Date: 20180321
  Serious: Yes (Hospitalization)
  Sender: FDA-Public Use
  Company Number: IT-TEVA-820161ACC

PATIENT
  Age: 49 Year
  Sex: Female

DRUGS (5)
  1. GABAPENTIN MYLAN GENERICS - 300 MG CAPSULE RIGIDE [Suspect]
     Active Substance: GABAPENTIN
     Indication: INTENTIONAL SELF-INJURY
     Route: 048
     Dates: start: 20160816, end: 20160816
  2. LEVOPRAID (SULPIRIDE) [Concomitant]
     Active Substance: SULPIRIDE
     Indication: PRODUCT USED FOR UNKNOWN INDICATION
     Dosage: 1 DF
     Route: 048
  3. RIVOTRIL [Suspect]
     Active Substance: CLONAZEPAM
     Indication: INTENTIONAL SELF-INJURY
     Route: 048
     Dates: start: 20160816, end: 20160816
  4. QUETIAPINE. [Suspect]
     Active Substance: QUETIAPINE
     Indication: INTENTIONAL SELF-INJURY
     Route: 048
     Dates: start: 20160816, end: 20160816
  5. CITALOPRAM [Concomitant]
     Active Substance: CITALOPRAM HYDROBROMIDE
     Indication: PRODUCT USED FOR UNKNOWN INDICATION
     Dosage: 15 MG
     Route: 048

REACTIONS (4)
  - Drug abuse [Recovering/Resolving]
  - Tachycardia [Recovering/Resolving]
  - Extrapyramidal disorder [Recovering/Resolving]
  - Sopor [Recovering/Resolving]

NARRATIVE: CASE EVENT DATE: 20160816
